FAERS Safety Report 18437797 (Version 1)
Quarter: 2020Q4

REPORT INFORMATION
  Report Type: Spontaneous
  Country: RO (occurrence: RO)
  Receive Date: 20201028
  Receipt Date: 20201028
  Transmission Date: 20210114
  Serious: Yes (Other)
  Sender: FDA-Public Use
  Company Number: RO-ASTRAZENECA-2020SF39014

PATIENT
  Age: 70 Year
  Sex: Male

DRUGS (7)
  1. ATACAND [Concomitant]
     Active Substance: CANDESARTAN CILEXETIL
  2. SORTIS [Concomitant]
     Active Substance: ATORVASTATIN
  3. FORXIGA [Suspect]
     Active Substance: DAPAGLIFLOZIN
     Indication: TYPE 2 DIABETES MELLITUS
     Dosage: 10.0MG UNKNOWN
     Route: 048
  4. CONCOR [Concomitant]
     Active Substance: BISOPROLOL FUMARATE
  5. NORVASC [Concomitant]
     Active Substance: AMLODIPINE BESYLATE
  6. SINTROM [Concomitant]
     Active Substance: ACENOCOUMAROL
  7. SIOFOR [Concomitant]
     Active Substance: METFORMIN HYDROCHLORIDE
     Indication: DIABETES MELLITUS

REACTIONS (1)
  - Prostate cancer recurrent [Unknown]

NARRATIVE: CASE EVENT DATE: 20200914
